FAERS Safety Report 10965654 (Version 1)
Quarter: 2015Q1

REPORT INFORMATION
  Report Type: Spontaneous
  Country: US (occurrence: None)
  Receive Date: 20150327
  Receipt Date: 20150327
  Transmission Date: 20150721
  Serious: Yes (Disabling)
  Sender: FDA-Public Use
  Company Number: None

PATIENT
  Age: 9 Year
  Sex: Male
  Weight: 54.43 kg

DRUGS (3)
  1. ALBUTEROL INHALATION SOLUTION FOR ASTHMA [Concomitant]
  2. CLONIDINE. [Concomitant]
     Active Substance: CLONIDINE
  3. ALBUTEROL SULPHATE [Suspect]
     Active Substance: ALBUTEROL
     Indication: ASTHMA
     Route: 055

REACTIONS (5)
  - Tic [None]
  - Chills [None]
  - Screaming [None]
  - Tourette^s disorder [None]
  - Tooth loss [None]

NARRATIVE: CASE EVENT DATE: 20150326
